FAERS Safety Report 5872285-6 (Version None)
Quarter: 2008Q3

REPORT INFORMATION
  Report Type: 
  Country: None (occurrence: None)
  Receive Date: 20080905
  Receipt Date: 20080825
  Transmission Date: 20090109
  Serious: Yes (Hospitalization)
  Sender: FDA-Public Use
  Company Number: US-ROCHE-582816

PATIENT
  Sex: Female
  Weight: 46.7 kg

DRUGS (20)
  1. TICLID [Suspect]
     Indication: THROMBOSIS PROPHYLAXIS
     Route: 065
     Dates: start: 20010101
  2. TICLID [Suspect]
     Route: 065
     Dates: start: 20040101
  3. TICLID [Suspect]
     Route: 065
     Dates: start: 20060101, end: 20080801
  4. TICLOPIDINE HCL [Suspect]
     Indication: THROMBOSIS PROPHYLAXIS
     Route: 065
     Dates: start: 20040101
  5. TICLOPIDINE HCL [Suspect]
     Route: 065
     Dates: start: 20060101
  6. COREG CR [Concomitant]
  7. COUMADIN [Concomitant]
     Indication: THROMBOSIS PROPHYLAXIS
  8. PLAVIX [Concomitant]
     Indication: THROMBOSIS PROPHYLAXIS
  9. LEVBID [Concomitant]
  10. FOLIC ACID [Concomitant]
  11. POLYCITRA-K [Concomitant]
  12. 1 CONCOMITANT DRUG [Concomitant]
     Dosage: DRUG: EYE DROPS
  13. PRILOSEC [Concomitant]
  14. LESCOL [Concomitant]
  15. BREATHING PILL [Concomitant]
     Dosage: DRUG: BREATHING MEDICATION
  16. ADVAIR DISKUS 100/50 [Concomitant]
     Dosage: STRENGTH: 500/50
  17. ASPIRIN [Concomitant]
     Indication: THROMBOSIS PROPHYLAXIS
  18. BETOPTIC S [Concomitant]
     Indication: GLAUCOMA
  19. HYDROCHLOROTHIAZIDE [Concomitant]
     Dosage: WHEN NEEDED
  20. VYTORIN [Concomitant]

REACTIONS (7)
  - BLADDER CANCER [None]
  - CEREBROVASCULAR ACCIDENT [None]
  - HEADACHE [None]
  - KIDNEY INFECTION [None]
  - LOSS OF CONSCIOUSNESS [None]
  - PAIN IN EXTREMITY [None]
  - VASODILATATION [None]
